FAERS Safety Report 13989673 (Version 1)
Quarter: 2017Q3

REPORT INFORMATION
  Report Type: Other
  Country: CN (occurrence: CN)
  Receive Date: 20170920
  Receipt Date: 20170920
  Transmission Date: 20171128
  Serious: Yes (Hospitalization)
  Sender: FDA-Public Use
  Company Number: CN--2017-CN-000004

PATIENT
  Age: 29 Year
  Sex: Female

DRUGS (3)
  1. CLOTRIMAZOLE. [Suspect]
     Active Substance: CLOTRIMAZOLE
     Indication: INTRA-UTERINE CONTRACEPTIVE DEVICE REMOVAL
     Dosage: UNKNOWN
  2. METRONIDAZOLE BRAND UNSPECIFIED (VIVIMED) [Suspect]
     Active Substance: METRONIDAZOLE
     Indication: INTRA-UTERINE CONTRACEPTIVE DEVICE REMOVAL
     Dosage: UNKNOWN
  3. CEPHALOSPORIN [Suspect]
     Active Substance: UNSPECIFIED INGREDIENT
     Indication: INTRA-UTERINE CONTRACEPTIVE DEVICE REMOVAL
     Dosage: UNKNOWN

REACTIONS (2)
  - Drug-induced liver injury [Recovering/Resolving]
  - Vanishing bile duct syndrome [Recovering/Resolving]
